FAERS Safety Report 6674224-7 (Version None)
Quarter: 2010Q2

REPORT INFORMATION
  Report Type: 
  Country: None (occurrence: None)
  Receive Date: 20100409
  Receipt Date: 20100329
  Transmission Date: 20101027
  Serious: Yes (Other)
  Sender: FDA-Public Use
  Company Number: US-WYE-H14370210

PATIENT
  Sex: Female

DRUGS (1)
  1. PRISTIQ [Suspect]
     Route: 048
     Dates: end: 20090301

REACTIONS (10)
  - DECREASED APPETITE [None]
  - DIZZINESS [None]
  - GRAND MAL CONVULSION [None]
  - HEADACHE [None]
  - HYPERHIDROSIS [None]
  - LETHARGY [None]
  - SYNCOPE [None]
  - TREMOR [None]
  - VISUAL IMPAIRMENT [None]
  - WEIGHT DECREASED [None]
